FAERS Safety Report 9115583 (Version 1)
Quarter: 2013Q1

REPORT INFORMATION
  Report Type: Spontaneous
  Country: DK (occurrence: None)
  Receive Date: 20130129
  Receipt Date: 20130129
  Transmission Date: 20140127
  Serious: Yes (Life-Threatening)
  Sender: FDA-Public Use
  Company Number: 2013MA000712

PATIENT
  Age: 63 Year
  Sex: Female

DRUGS (6)
  1. METOCLOPRAMIDE ORAL SOLUTION USP, EQ. 5 MG BASE/5 ML (ALPHARMA) (METOCLOPRAMIDE) [Suspect]
     Indication: NAUSEA
     Dates: start: 20121220, end: 20121220
  2. CLARITHROMYCIN (CLARITHROMYCIN) [Suspect]
     Route: 048
     Dates: start: 20121220, end: 20121220
  3. VOLPLEX (NO PREF. NAME) [Suspect]
     Indication: HYPOTENSION
     Route: 042
     Dates: start: 20121220, end: 20121220
  4. MEROPENEM [Concomitant]
  5. GENTAMICIN [Concomitant]
  6. MEROPENEM [Concomitant]

REACTIONS (7)
  - Hypotension [None]
  - Erythema [None]
  - Swelling face [None]
  - Respiratory disorder [None]
  - Stridor [None]
  - Wheezing [None]
  - Oxygen saturation decreased [None]
